FAERS Safety Report 14506675 (Version 4)
Quarter: 2018Q4

REPORT INFORMATION
  Report Type: Spontaneous
  Country: IT (occurrence: IT)
  Receive Date: 20180208
  Receipt Date: 20181130
  Transmission Date: 20190204
  Serious: Yes (Hospitalization)
  Sender: FDA-Public Use
  Company Number: IT-SA-2018SA028892

PATIENT
  Age: 69 Year
  Sex: Female

DRUGS (7)
  1. LANTUS [Suspect]
     Active Substance: INSULIN GLARGINE
     Indication: PRODUCT USED FOR UNKNOWN INDICATION
     Dosage: UNK UNK,UNK
     Route: 058
  2. APIDRA [Suspect]
     Active Substance: INSULIN GLULISINE
     Indication: TYPE 2 DIABETES MELLITUS
     Dosage: 20 IU,QD
     Route: 058
  3. ESOMEPRAZOLE MAGNESIUM. [Concomitant]
     Active Substance: ESOMEPRAZOLE MAGNESIUM
     Dosage: 20 MG,QD
  4. AMLODIPINE [Concomitant]
     Active Substance: AMLODIPINE BESYLATE
     Dosage: 10 MEQ,UNK
     Route: 065
  5. TORVAST [Concomitant]
     Active Substance: ATORVASTATIN
     Dosage: 20 MG,QD
  6. TAVOR [SIMVASTATIN] [Concomitant]
     Active Substance: SIMVASTATIN
     Dosage: 2.5 MG,QD
  7. PAROXETINE. [Concomitant]
     Active Substance: PAROXETINE
     Dosage: UNK UNK,UNK
     Route: 065

REACTIONS (5)
  - Spinal pain [Recovering/Resolving]
  - Fall [Recovering/Resolving]
  - Sopor [Recovering/Resolving]
  - Hypoglycaemia [Recovering/Resolving]
  - Head injury [Recovering/Resolving]

NARRATIVE: CASE EVENT DATE: 20171223
